FAERS Safety Report 24298049 (Version 2)
Quarter: 2025Q1

REPORT INFORMATION
  Report Type: Spontaneous
  Country: IN (occurrence: IN)
  Receive Date: 20240909
  Receipt Date: 20250114
  Transmission Date: 20250409
  Serious: Yes (Death, Other)
  Sender: PFIZER
  Company Number: IN-PFIZER INC-PV202300202225

PATIENT
  Age: 66 Year
  Sex: Male

DRUGS (2)
  1. DACOMITINIB [Suspect]
     Active Substance: DACOMITINIB
     Indication: Lung adenocarcinoma
     Dosage: 30 MG, 1X/DAY
     Route: 048
     Dates: start: 20231118
  2. DENOSUMAB [Concomitant]
     Active Substance: DENOSUMAB

REACTIONS (8)
  - Death [Fatal]
  - Seizure [Unknown]
  - Partial seizures [Unknown]
  - Postictal state [Unknown]
  - Blood sodium decreased [Unknown]
  - Pulmonary mass [Unknown]
  - Blood pressure abnormal [Unknown]
  - Diarrhoea [Unknown]

NARRATIVE: CASE EVENT DATE: 20240122
